FAERS Safety Report 23952179 (Version 5)
Quarter: 2025Q2

REPORT INFORMATION
  Report Type: Spontaneous
  Country: US (occurrence: US)
  Receive Date: 20240607
  Receipt Date: 20250608
  Transmission Date: 20250716
  Serious: Yes (Hospitalization)
  Sender: COHERUS
  Company Number: US-COHERUS BIOSCIENCES, Inc.-2024-COH-US000410

PATIENT

DRUGS (16)
  1. UDENYCA [Suspect]
     Active Substance: PEGFILGRASTIM-CBQV
     Indication: Triple negative breast cancer
     Dosage: 6 MG, Q3WEEKS
     Route: 058
     Dates: start: 20240507
  2. GABAPENTIN [Concomitant]
     Active Substance: GABAPENTIN
  3. MAGNESIUM OXIDE [Concomitant]
     Active Substance: MAGNESIUM OXIDE
  4. APIXABAN [Concomitant]
     Active Substance: APIXABAN
  5. DEXAMETHASONE [Concomitant]
     Active Substance: DEXAMETHASONE
  6. POTASSIUM CHLORIDE [Concomitant]
     Active Substance: POTASSIUM CHLORIDE
  7. ONDANSETRON [Concomitant]
     Active Substance: ONDANSETRON
  8. PREDNISONE [Concomitant]
     Active Substance: PREDNISONE
  9. LEVOTHYROXINE [Concomitant]
     Active Substance: LEVOTHYROXINE
  10. OMEPRAZOLE [Concomitant]
     Active Substance: OMEPRAZOLE
  11. PROCHLORPERAZINE [Concomitant]
     Active Substance: PROCHLORPERAZINE
  12. METFORMIN [Concomitant]
     Active Substance: METFORMIN HYDROCHLORIDE
  13. SIMVASTATIN [Concomitant]
     Active Substance: SIMVASTATIN
  14. ACETAMINOPHEN [Concomitant]
     Active Substance: ACETAMINOPHEN
  15. CARBOPLATIN [Concomitant]
     Active Substance: CARBOPLATIN
     Indication: Triple negative breast cancer
  16. DOCETAXEL [Concomitant]
     Active Substance: DOCETAXEL
     Indication: Triple negative breast cancer

REACTIONS (8)
  - Neutrophil count decreased [Recovered/Resolved]
  - Septic shock [Recovered/Resolved]
  - Vomiting [Recovered/Resolved]
  - Nausea [Recovered/Resolved]
  - Asthenia [Unknown]
  - Product dose omission issue [Unknown]
  - Device malfunction [Recovered/Resolved]
  - Device failure [Unknown]

NARRATIVE: CASE EVENT DATE: 20240514
